FAERS Safety Report 22186242 (Version 2)
Quarter: 2023Q2

REPORT INFORMATION
  Report Type: Spontaneous
  Country: BR (occurrence: None)
  Receive Date: 20230407
  Receipt Date: 20230421
  Transmission Date: 20230721
  Serious: Yes (Death)
  Sender: FDA-Public Use
  Company Number: 2023A080451

PATIENT
  Age: 80 Year
  Sex: Male

DRUGS (5)
  1. SEROQUEL [Suspect]
     Active Substance: QUETIAPINE FUMARATE
     Indication: Memory impairment
     Dosage: 1 TABLET IN THE MORNING AND 1 TABLET AT NIGHT
     Route: 048
     Dates: start: 202209
  2. SEROQUEL [Suspect]
     Active Substance: QUETIAPINE FUMARATE
     Indication: Agitation
     Dosage: 1 TABLET IN THE MORNING AND 1 TABLET AT NIGHT
     Route: 048
     Dates: start: 202209
  3. LOSARTAN [Concomitant]
     Active Substance: LOSARTAN
     Dosage: MANY YEARS AGO
  4. BISOPROLOL FUMARATE [Concomitant]
     Active Substance: BISOPROLOL FUMARATE
     Dosage: MANY YEARS AGO
  5. RIVOTRIL [Concomitant]
     Active Substance: CLONAZEPAM
     Indication: Sleep disorder
     Dates: start: 202212

REACTIONS (3)
  - Pulmonary sepsis [Fatal]
  - Pneumonia [Fatal]
  - Off label use [Unknown]
